FAERS Safety Report 9737016 (Version 1)
Quarter: 2013Q4

REPORT INFORMATION
  Report Type: Spontaneous
  Country: US (occurrence: US)
  Receive Date: 20131206
  Receipt Date: 20131206
  Transmission Date: 20140711
  Serious: No
  Sender: FDA-Public Use
  Company Number: US-GILEAD-2009-0023732

PATIENT
  Sex: Female
  Weight: 56.7 kg

DRUGS (19)
  1. LETAIRIS [Suspect]
     Indication: PULMONARY ARTERIAL HYPERTENSION
     Route: 048
     Dates: start: 20070916
  2. DEMADEX [Concomitant]
  3. LEVOTHYROXINE [Concomitant]
  4. ALBUTEROL INHALER [Concomitant]
  5. CLARITIN [Concomitant]
  6. SINGULAIR [Concomitant]
  7. ALLEGRA [Concomitant]
  8. ASTELIN NASAL SPRAY [Concomitant]
  9. SYNTHROID [Concomitant]
  10. ESTRONATURAL [Concomitant]
  11. FLAGYL [Concomitant]
  12. K-DUR [Concomitant]
  13. LUMIGAN [Concomitant]
  14. DICYCLOMINE [Concomitant]
  15. PRILOSEC [Concomitant]
  16. MUCINEX [Concomitant]
  17. FLONASE [Concomitant]
  18. FIBERCON [Concomitant]
  19. MULTIVITAMIN [Concomitant]

REACTIONS (1)
  - Oedema [Unknown]
